FAERS Safety Report 8474795-4 (Version None)
Quarter: 2012Q2

REPORT INFORMATION
  Report Type: 
  Country: None (occurrence: None)
  Receive Date: 20120628
  Receipt Date: 20120626
  Transmission Date: 20120825
  Serious: No
  Sender: FDA-Public Use
  Company Number: US-PFIZER INC-2012153542

PATIENT
  Sex: Female

DRUGS (4)
  1. NORVASC [Suspect]
  2. NEURONTIN [Suspect]
  3. LIPITOR [Suspect]
  4. GLUCOTROL [Suspect]

REACTIONS (1)
  - HEARING IMPAIRED [None]
